FAERS Safety Report 8621359-5 (Version None)
Quarter: 2012Q3

REPORT INFORMATION
  Report Type: 
  Country: None (occurrence: None)
  Receive Date: 20120824
  Receipt Date: 20120813
  Transmission Date: 20120928
  Serious: Yes (Other)
  Sender: FDA-Public Use
  Company Number: CA-ROCHE-GNE290636

PATIENT
  Sex: Female

DRUGS (2)
  1. CORTISONE ACETATE [Concomitant]
     Indication: PRODUCT USED FOR UNKNOWN INDICATION
     Dosage: 10 MG, QD
     Route: 065
  2. XOLAIR [Suspect]
     Indication: PRODUCT USED FOR UNKNOWN INDICATION
     Dosage: 375 MG, Q2W
     Route: 058
     Dates: start: 20090428, end: 20090901

REACTIONS (7)
  - FIBROMYALGIA [None]
  - MALAISE [None]
  - NASOPHARYNGITIS [None]
  - DRUG INEFFECTIVE [None]
  - DEPRESSION [None]
  - DYSPNOEA [None]
  - WEIGHT INCREASED [None]
